FAERS Safety Report 10313381 (Version 1)
Quarter: 2014Q3

REPORT INFORMATION
  Report Type: Spontaneous
  Country: IE (occurrence: IE)
  Receive Date: 20140718
  Receipt Date: 20140718
  Transmission Date: 20150326
  Serious: Yes (Other)
  Sender: FDA-Public Use
  Company Number: IE-SA-2014SA092342

PATIENT
  Sex: Female

DRUGS (2)
  1. CLEXANE [Suspect]
     Active Substance: ENOXAPARIN SODIUM
     Indication: PROPHYLAXIS
     Dosage: FORM: SYRINGE
     Route: 058
     Dates: start: 20140630
  2. CORTICOSTEROID NOS [Concomitant]
     Active Substance: CORTICOSTEROID NOS

REACTIONS (3)
  - Cellulitis [Recovering/Resolving]
  - Erythema [Recovering/Resolving]
  - Contusion [Unknown]

NARRATIVE: CASE EVENT DATE: 20140630
